FAERS Safety Report 4811082-7 (Version None)
Quarter: 2005Q4

REPORT INFORMATION
  Report Type: 
  Country: None (occurrence: None)
  Receive Date: 20051025
  Receipt Date: 20051017
  Transmission Date: 20060501
  Serious: Yes (Life-Threatening, Hospitalization, Other)
  Sender: FDA-Public Use
  Company Number: USA-2005-0019755

PATIENT
  Age: 19 Year
  Sex: Male

DRUGS (2)
  1. OXYCONTIN [Suspect]
  2. XANAX [Suspect]

REACTIONS (11)
  - AMNESIA [None]
  - BRAIN DAMAGE [None]
  - BRAIN HYPOXIA [None]
  - COMA [None]
  - LOSS OF CONSCIOUSNESS [None]
  - MONOPARESIS [None]
  - MULTIPLE DRUG OVERDOSE [None]
  - POLYSUBSTANCE ABUSE [None]
  - RESPIRATORY DISORDER [None]
  - RESPIRATORY RATE DECREASED [None]
  - WHEELCHAIR USER [None]
